FAERS Safety Report 5712663-9 (Version None)
Quarter: 2008Q2

REPORT INFORMATION
  Report Type: 
  Country: None (occurrence: None)
  Receive Date: 20080422
  Receipt Date: 20080417
  Transmission Date: 20081010
  Serious: Yes (Other)
  Sender: FDA-Public Use
  Company Number: A0723734A

PATIENT
  Age: 28 Year
  Sex: Male

DRUGS (2)
  1. NICORETTE [Suspect]
     Indication: DRUG USE FOR UNKNOWN INDICATION
     Route: 002
     Dates: start: 20050101
  2. NICORETTE [Suspect]
     Indication: DRUG USE FOR UNKNOWN INDICATION
     Route: 002
     Dates: start: 20080301

REACTIONS (4)
  - BRUXISM [None]
  - ERECTILE DYSFUNCTION [None]
  - FATIGUE [None]
  - THROMBOCYTOPENIA [None]
